FAERS Safety Report 25236656 (Version 3)
Quarter: 2025Q4

REPORT INFORMATION
  Report Type: Report from Study
  Country: EU (occurrence: EU)
  Receive Date: 20250424
  Receipt Date: 20251203
  Transmission Date: 20260117
  Serious: Yes (Hospitalization, Other)
  Sender: PFIZER
  Company Number: EU-GSK-FR2025GSK041117

PATIENT
  Age: 75 Year
  Sex: Female
  Weight: 98.9 kg

DRUGS (6)
  1. CARBOPLATIN [Suspect]
     Active Substance: CARBOPLATIN
     Indication: Endometrial cancer recurrent
     Dosage: UNK
     Dates: start: 20240301, end: 20240906
  2. CARBOPLATIN [Suspect]
     Active Substance: CARBOPLATIN
     Indication: Cervix neoplasm
  3. PACLITAXEL [Suspect]
     Active Substance: PACLITAXEL
     Indication: Endometrial cancer recurrent
     Dosage: UNK
     Dates: start: 20240301, end: 20240906
  4. PACLITAXEL [Suspect]
     Active Substance: PACLITAXEL
     Indication: Cervix neoplasm
  5. DOSTARLIMAB [Suspect]
     Active Substance: DOSTARLIMAB
     Indication: Endometrial cancer recurrent
     Dosage: 500 MG
     Route: 042
     Dates: start: 20240301, end: 20240906
  6. DOSTARLIMAB [Suspect]
     Active Substance: DOSTARLIMAB
     Indication: Cervix neoplasm

REACTIONS (9)
  - Skin toxicity [Recovering/Resolving]
  - Skin lesion [Unknown]
  - Condition aggravated [Unknown]
  - Pemphigoid [Recovering/Resolving]
  - Erythema multiforme [Unknown]
  - Skin toxicity [Not Recovered/Not Resolved]
  - Psoriasis [Unknown]
  - Lichen planus [Unknown]
  - Fixed eruption [Unknown]

NARRATIVE: CASE EVENT DATE: 20240501
